FAERS Safety Report 4587016-X (Version None)
Quarter: 2005Q1

REPORT INFORMATION
  Report Type: 
  Country: None (occurrence: None)
  Receive Date: 20050214
  Receipt Date: 20050204
  Transmission Date: 20050727
  Serious: Yes (Life-Threatening, Hospitalization)
  Sender: FDA-Public Use
  Company Number: 2005AP00976

PATIENT
  Age: 64 Year
  Sex: Male

DRUGS (3)
  1. XYLOCAINE W/ EPINEPHRINE [Suspect]
     Indication: LOCAL ANAESTHESIA
     Dosage: 5 MG DE
  2. GELOFUSINE [Suspect]
     Dates: start: 20030821, end: 20030821
  3. MIDAZOLAM HCL [Suspect]
     Dosage: 8 MG ONCE
     Dates: start: 20030821, end: 20030821

REACTIONS (6)
  - BRONCHOSPASM [None]
  - COUGH [None]
  - CYANOSIS [None]
  - HYPOTENSION [None]
  - PRODUCTIVE COUGH [None]
  - RESPIRATORY DISTRESS [None]
